FAERS Safety Report 7657413-4 (Version None)
Quarter: 2011Q3

REPORT INFORMATION
  Report Type: 
  Country: None (occurrence: None)
  Receive Date: 20110804
  Receipt Date: 20110531
  Transmission Date: 20111222
  Serious: No
  Sender: FDA-Public Use
  Company Number: US-ASTRAZENECA-2011SE33449

PATIENT
  Sex: Male

DRUGS (8)
  1. VANDETANIB [Suspect]
     Indication: THYROID CANCER
     Route: 048
  2. GUAIFENESINE [Concomitant]
  3. TERAZOSIN HCL [Concomitant]
  4. ISOSORBIDE DINITRATE [Concomitant]
  5. KETOCONAZOLE [Concomitant]
  6. SERTRALINE HYDROCHLORIDE [Concomitant]
  7. POTASSIUM CITRATE [Concomitant]
  8. LISINOPRIL [Concomitant]

REACTIONS (3)
  - SPEECH DISORDER [None]
  - DYSPNOEA [None]
  - CHEST PAIN [None]
